FAERS Safety Report 9461102 (Version 3)
Quarter: 2013Q4

REPORT INFORMATION
  Report Type: Spontaneous
  Country: US (occurrence: US)
  Receive Date: 20130816
  Receipt Date: 20131018
  Transmission Date: 20140711
  Serious: Yes (Death, Hospitalization)
  Sender: FDA-Public Use
  Company Number: US-BIOGENIDEC-2013BI071842

PATIENT
  Age: 56 Year
  Sex: Female

DRUGS (21)
  1. TECFIDERA [Suspect]
     Indication: MULTIPLE SCLEROSIS
     Route: 048
     Dates: start: 201305, end: 201307
  2. OXYCODONE [Concomitant]
  3. MORPHINE SULFATE [Concomitant]
  4. HYDROCODONE [Concomitant]
  5. BACLOFEN [Concomitant]
     Indication: GAIT DISTURBANCE
  6. VALIUM [Concomitant]
  7. XANAX [Concomitant]
  8. METFORMIN [Concomitant]
     Indication: DIABETES MELLITUS
  9. NEXIUM [Concomitant]
  10. GABAPENTIN [Concomitant]
  11. LOSARTAN/HCTZ [Concomitant]
  12. CARISOPRODOL [Concomitant]
  13. ASPIRIN [Concomitant]
  14. LIDODERM [Concomitant]
  15. MOBIC [Concomitant]
  16. CITALOPRAM [Concomitant]
  17. FENTANYL [Concomitant]
  18. ZOFRAN [Concomitant]
  19. XOPENEX [Concomitant]
  20. MAXALT [Concomitant]
  21. LASIX [Concomitant]

REACTIONS (6)
  - Hepatitis [Unknown]
  - Multiple sclerosis [Fatal]
  - Portal vein thrombosis [Fatal]
  - Hypertension [Fatal]
  - Diabetic complication [Fatal]
  - Nausea [Unknown]
